FAERS Safety Report 15081263 (Version 1)
Quarter: 2018Q2

REPORT INFORMATION
  Report Type: Spontaneous
  Country: US (occurrence: US)
  Receive Date: 20180628
  Receipt Date: 20180628
  Transmission Date: 20180711
  Serious: No
  Sender: FDA-Public Use
  Company Number: US-ACCORD-064756

PATIENT
  Age: 73 Year
  Sex: Male
  Weight: 97.52 kg

DRUGS (1)
  1. CLONAZEPAM ACCORD [Suspect]
     Active Substance: CLONAZEPAM
     Indication: ANXIETY
     Dosage: DOSE/STRENGTH: 1 MG
     Route: 048
     Dates: start: 20180226

REACTIONS (6)
  - Malaise [Unknown]
  - Product substitution issue [Unknown]
  - Dyspepsia [Unknown]
  - Chest pain [Unknown]
  - Feeling abnormal [Unknown]
  - Abdominal pain [Unknown]
